FAERS Safety Report 18054111 (Version 3)
Quarter: 2021Q4

REPORT INFORMATION
  Report Type: Spontaneous
  Country: SK (occurrence: SK)
  Receive Date: 20200722
  Receipt Date: 20211112
  Transmission Date: 20220303
  Serious: Yes (Other)
  Sender: FDA-Public Use
  Company Number: SK-NOVARTISPH-NVSC2020SK205579

PATIENT
  Age: 22 Month
  Sex: Female

DRUGS (1)
  1. CEFTRIAXONE [Suspect]
     Active Substance: CEFTRIAXONE
     Indication: Pyelonephritis acute
     Dosage: 55 MG/KG DOSE (750MG TO 20ML OF NORMAL SALINE/ 20MINS)
     Route: 042

REACTIONS (1)
  - Cholelithiasis [Recovered/Resolved]
